FAERS Safety Report 22397520 (Version 1)
Quarter: 2023Q2

REPORT INFORMATION
  Report Type: Spontaneous
  Country: SK (occurrence: SK)
  Receive Date: 20230602
  Receipt Date: 20230602
  Transmission Date: 20230722
  Serious: Yes (Death, Hospitalization, Other)
  Sender: FDA-Public Use
  Company Number: SK-ASTELLAS-2023US016535

PATIENT
  Age: 67 Year
  Sex: Male

DRUGS (1)
  1. XOSPATA [Suspect]
     Active Substance: GILTERITINIB
     Indication: Product used for unknown indication
     Dosage: 3 DF, DAILY
     Route: 048
     Dates: start: 202211

REACTIONS (8)
  - Acute myeloid leukaemia [Fatal]
  - Blast cells present [Unknown]
  - Pancytopenia [Unknown]
  - Febrile neutropenia [Unknown]
  - Melaena [Unknown]
  - Gastric haemorrhage [Unknown]
  - Gastric disorder [Unknown]
  - Remission not achieved [Unknown]

NARRATIVE: CASE EVENT DATE: 20221201
